FAERS Safety Report 9118689 (Version 1)
Quarter: 2013Q1

REPORT INFORMATION
  Report Type: Spontaneous
  Country: US (occurrence: None)
  Receive Date: 20130221
  Receipt Date: 20130221
  Transmission Date: 20140127
  Serious: Yes (Other)
  Sender: FDA-Public Use
  Company Number: None

PATIENT
  Age: 67 Year
  Sex: Female
  Weight: 54.43 kg

DRUGS (1)
  1. HYOSCYAMINE [Suspect]
     Indication: IRRITABLE BOWEL SYNDROME
     Dates: start: 20130211, end: 20130219

REACTIONS (3)
  - Heart rate irregular [None]
  - Insomnia [None]
  - Product substitution issue [None]
